FAERS Safety Report 8850635 (Version 1)
Quarter: 2012Q4

REPORT INFORMATION
  Report Type: 
  Country: CA (occurrence: CA)
  Receive Date: 20121019
  Receipt Date: 20121019
  Transmission Date: 20130627
  Serious: No
  Sender: FDA-Public Use
  Company Number: CA-009507513-1210CAN006975

PATIENT
  Sex: Female

DRUGS (8)
  1. SAPHRIS [Suspect]
     Indication: BIPOLAR DISORDER
     Dosage: 2.5 mg, qd
     Route: 060
     Dates: start: 20120910
  2. SAPHRIS [Suspect]
     Dosage: 5 mg, qd
     Route: 060
     Dates: start: 20121004
  3. SAPHRIS [Suspect]
     Dosage: 7.5 mg, qd
     Route: 060
     Dates: start: 20121010
  4. ABILIFY [Concomitant]
     Indication: BIPOLAR DISORDER
     Route: 048
  5. LAMOTRIGINE [Concomitant]
     Indication: BIPOLAR DISORDER
     Route: 048
  6. QVAR [Concomitant]
     Indication: ASTHMA
  7. SPIRIVA [Concomitant]
     Indication: ASTHMA
  8. ATROVENT [Concomitant]
     Indication: ASTHMA

REACTIONS (7)
  - Condition aggravated [Not Recovered/Not Resolved]
  - Headache [Not Recovered/Not Resolved]
  - Pruritus generalised [Not Recovered/Not Resolved]
  - Vertigo [Not Recovered/Not Resolved]
  - Inappropriate schedule of drug administration [Unknown]
  - Wrong technique in drug usage process [Unknown]
  - Underdose [Unknown]
